FAERS Safety Report 24205171 (Version 3)
Quarter: 2024Q3

REPORT INFORMATION
  Report Type: Spontaneous
  Country: AT (occurrence: AT)
  Receive Date: 20240813
  Receipt Date: 20240912
  Transmission Date: 20241017
  Serious: Yes (Hospitalization, Other)
  Sender: GILEAD
  Company Number: None

PATIENT
  Age: 45 Year
  Sex: Male
  Weight: 83 kg

DRUGS (24)
  1. VEKLURY [Suspect]
     Active Substance: REMDESIVIR
     Indication: Product used for unknown indication
     Dosage: 100 MG
     Route: 042
     Dates: start: 20240731, end: 20240804
  2. VEKLURY [Suspect]
     Active Substance: REMDESIVIR
     Dosage: 1 DOSAGE FORM
     Route: 048
     Dates: start: 20240729, end: 20240803
  3. ACETAMINOPHEN [Concomitant]
     Active Substance: ACETAMINOPHEN
  4. FILGRASTIM [Concomitant]
     Active Substance: FILGRASTIM
     Dates: start: 20240725
  5. LISINOPRIL [Concomitant]
     Active Substance: LISINOPRIL
  6. ZOFRAN [Concomitant]
     Active Substance: ONDANSETRON HYDROCHLORIDE
  7. VALPROIC ACID [Concomitant]
     Active Substance: VALPROIC ACID
  8. POTASSIUM TARTRATE\SODIUM BICARBONATE [Concomitant]
     Active Substance: POTASSIUM TARTRATE\SODIUM BICARBONATE
  9. PARACODIN [DIHYDROCODEINE] [Concomitant]
  10. QUETIAPINE [Concomitant]
     Active Substance: QUETIAPINE
  11. MEROPENEM [Concomitant]
     Active Substance: MEROPENEM
     Dates: start: 20240730
  12. MOTILIUM [Concomitant]
     Active Substance: DOMPERIDONE
     Dosage: 10 MG
  13. LAXOGOL [Concomitant]
  14. BISOPROLOL FUMARATE [Concomitant]
     Active Substance: BISOPROLOL FUMARATE
  15. ENOXAPARIN SODIUM [Concomitant]
     Active Substance: ENOXAPARIN SODIUM
  16. ALLOPURINOL [Concomitant]
     Active Substance: ALLOPURINOL
  17. OCULOTECT [RETINOL PALMITATE] [Concomitant]
  18. MELATONIN [Concomitant]
     Active Substance: MELATONIN
  19. TRAZODONE HYDROCHLORIDE [Concomitant]
     Active Substance: TRAZODONE HYDROCHLORIDE
  20. SODIUM PICOSULFATE [Concomitant]
     Active Substance: SODIUM PICOSULFATE
  21. BENSERAZIDE HYDROCHLORIDE\LEVODOPA [Concomitant]
     Active Substance: BENSERAZIDE HYDROCHLORIDE\LEVODOPA
  22. SEROQUEL [Concomitant]
     Active Substance: QUETIAPINE FUMARATE
  23. CHOLECALCIFEROL [Concomitant]
     Active Substance: CHOLECALCIFEROL
  24. LORAZEPAM [Concomitant]
     Active Substance: LORAZEPAM

REACTIONS (2)
  - Drug-induced liver injury [Not Recovered/Not Resolved]
  - Hepatic enzyme increased [Not Recovered/Not Resolved]

NARRATIVE: CASE EVENT DATE: 20240803
